FAERS Safety Report 8432283-5 (Version None)
Quarter: 2012Q2

REPORT INFORMATION
  Report Type: 
  Country: None (occurrence: None)
  Receive Date: 20120606
  Receipt Date: 20120522
  Transmission Date: 20120825
  Serious: Yes (Hospitalization, Other)
  Sender: FDA-Public Use
  Company Number: FK201201433

PATIENT
  Age: 76 Year
  Sex: Female

DRUGS (2)
  1. METHOTREXATE [Suspect]
     Indication: PRODUCT USED FOR UNKNOWN INDICATION
     Dosage: 15 MG, ONCE A WEEK, INTRAVENOUS
     Route: 042
  2. PAMIDRONATE DISODIUM [Suspect]
     Indication: PRODUCT USED FOR UNKNOWN INDICATION
     Dosage: 30 MG, EVERY 3 MONTHS, INTRAVENOUS
     Route: 042

REACTIONS (8)
  - PATHOLOGICAL FRACTURE [None]
  - CELLULITIS [None]
  - FEMORAL NECK FRACTURE [None]
  - STRESS FRACTURE [None]
  - JOINT SWELLING [None]
  - ATYPICAL FEMUR FRACTURE [None]
  - TIBIA FRACTURE [None]
  - FALL [None]
